FAERS Safety Report 8801592 (Version 1)
Quarter: 2012Q4

REPORT INFORMATION
  Report Type: Report from Study
  Country: US (occurrence: US)
  Receive Date: 20120921
  Receipt Date: 20120921
  Transmission Date: 20130627
  Serious: Yes (Other)
  Sender: FDA-Public Use
  Company Number: US-ABBOTT-12P-163-0979445-00

PATIENT
  Age: 28 None
  Sex: Female
  Weight: 47.22 kg

DRUGS (6)
  1. HUMIRA [Suspect]
     Indication: CROHN^S DISEASE
     Dates: start: 201005, end: 201111
  2. HUMIRA [Suspect]
     Dosage: Skipped a dose due to Surgery
     Dates: start: 2011
  3. XANAX [Concomitant]
     Indication: ANXIETY
  4. ORTHO TRI CYCLEN [Concomitant]
     Indication: CONTRACEPTION
  5. ASACOL [Concomitant]
     Indication: PRODUCT USED FOR UNKNOWN INDICATION
  6. LIALDA [Concomitant]
     Indication: PRODUCT USED FOR UNKNOWN INDICATION
     Dosage: 2 pills daily

REACTIONS (10)
  - Tympanic membrane perforation [Not Recovered/Not Resolved]
  - Hot flush [Recovering/Resolving]
  - Nausea [Recovering/Resolving]
  - Palpitations [Unknown]
  - Insomnia [Unknown]
  - Headache [Recovering/Resolving]
  - Deafness [Recovering/Resolving]
  - Deafness [Recovering/Resolving]
  - Gastroenteritis viral [Recovering/Resolving]
  - Hyperaesthesia [Recovering/Resolving]
